FAERS Safety Report 14264833 (Version 2)
Quarter: 2018Q1

REPORT INFORMATION
  Report Type: Spontaneous
  Country: FI (occurrence: FI)
  Receive Date: 20171208
  Receipt Date: 20180109
  Transmission Date: 20180508
  Serious: Yes (Other)
  Sender: FDA-Public Use
  Company Number: FI-PFIZER INC-2017213589

PATIENT
  Age: 69 Year
  Sex: Male

DRUGS (5)
  1. OPAMOX [Concomitant]
     Active Substance: OXAZEPAM
     Indication: ANXIETY
     Dosage: 90 MG, DAILY
     Route: 048
  2. PANADOL FORTE [Concomitant]
     Active Substance: ACETAMINOPHEN\CAFFEINE
     Indication: PAIN
     Dosage: 1 G, 3X/DAY
     Route: 048
  3. CHAMPIX [Suspect]
     Active Substance: VARENICLINE TARTRATE
     Indication: SMOKING CESSATION THERAPY
     Dosage: 1 MG, 2X/DAY
     Route: 048
     Dates: start: 20170504, end: 20170510
  4. CHAMPIX [Suspect]
     Active Substance: VARENICLINE TARTRATE
     Dosage: UNK, 1X/DAY
     Dates: start: 201705, end: 201705
  5. SOMAC [Concomitant]
     Active Substance: PANTOPRAZOLE SODIUM
     Indication: DYSPEPSIA
     Dosage: 40 MG, 2X/DAY
     Route: 048

REACTIONS (10)
  - Mucosal dryness [Unknown]
  - Nausea [Recovered/Resolved]
  - Depression [Unknown]
  - Tinnitus [Unknown]
  - Dry mouth [Unknown]
  - Fatigue [Unknown]
  - Irritability [Unknown]
  - Sleep disorder [Unknown]
  - Arthropathy [Unknown]
  - Hallucination [Recovered/Resolved]

NARRATIVE: CASE EVENT DATE: 201705
